FAERS Safety Report 9772449 (Version 1)
Quarter: 2013Q4

REPORT INFORMATION
  Report Type: Spontaneous
  Country: US (occurrence: None)
  Receive Date: 20131217
  Receipt Date: 20131217
  Transmission Date: 20140711
  Serious: Yes (Other)
  Sender: FDA-Public Use
  Company Number: 2013-US-003984

PATIENT
  Age: 43 Year
  Sex: Female
  Weight: 56.2 kg

DRUGS (7)
  1. XYREM [Suspect]
     Indication: NARCOLEPSY
     Dosage: 3 G, BID, ORAL
     Route: 048
     Dates: start: 201304, end: 2013
  2. XYREM [Suspect]
     Indication: CATAPLEXY
     Dosage: 3 G, BID, ORAL
     Route: 048
     Dates: start: 201304, end: 2013
  3. CLONIDINE ( CLONIDINE HYDROCHLORIDE) [Concomitant]
  4. ALPRAZOLAM ( ALPRAZOLAM) [Concomitant]
  5. CLONAZEPAM [Concomitant]
  6. SYNTHROID (LEVOTHYROXINE SODIUM) [Concomitant]
  7. CESAMET (NABILONE) [Concomitant]

REACTIONS (2)
  - Loss of consciousness [None]
  - Dizziness [None]
